FAERS Safety Report 18755722 (Version 2)
Quarter: 2021Q1

REPORT INFORMATION
  Report Type: Spontaneous
  Country: ES (occurrence: ES)
  Receive Date: 20210119
  Receipt Date: 20210126
  Transmission Date: 20210419
  Serious: Yes (Death)
  Sender: FDA-Public Use
  Company Number: ES-CURIUM-2021000003

PATIENT
  Age: 40 Year
  Sex: Female
  Weight: 93.5 kg

DRUGS (5)
  1. FOLIC ACID. [Concomitant]
     Active Substance: FOLIC ACID
     Indication: PRODUCT USED FOR UNKNOWN INDICATION
     Dates: start: 202006
  2. PULMOCIS [Suspect]
     Active Substance: TECHNETIUM TC-99M ALBUMIN AGGREGATED
     Indication: VENTILATION/PERFUSION SCAN
     Route: 042
     Dates: start: 20210104, end: 20210104
  3. TEKCIS 2?50 GBQ GENERADOR DE RADIONUCLEIDO [Suspect]
     Active Substance: TECHNETIUM TC-99M SODIUM PERTECHNETATE
     Indication: VENTILATION/PERFUSION SCAN
     Route: 042
     Dates: start: 20210104, end: 20210104
  4. ALDOMET 500 [Concomitant]
     Indication: HYPERTENSION
     Dates: start: 20210102
  5. LABETALOL 100 MG [Concomitant]
     Active Substance: LABETALOL HYDROCHLORIDE
     Indication: HYPERTENSION
     Dates: start: 20210102

REACTIONS (2)
  - Stillbirth [Fatal]
  - Maternal exposure during pregnancy [Recovered/Resolved]

NARRATIVE: CASE EVENT DATE: 20210104
